FAERS Safety Report 6817390-2 (Version None)
Quarter: 2010Q3

REPORT INFORMATION
  Report Type: 
  Country: None (occurrence: None)
  Receive Date: 20100706
  Receipt Date: 20100618
  Transmission Date: 20110219
  Serious: Yes (Hospitalization)
  Sender: FDA-Public Use
  Company Number: A0709953A

PATIENT
  Age: 57 Year
  Sex: Female
  Weight: 70 kg

DRUGS (7)
  1. AVANDIA [Suspect]
     Dosage: 2MG TWICE PER DAY
     Route: 048
     Dates: start: 20060417
  2. AVANDAMET [Suspect]
     Route: 048
     Dates: start: 20041201
  3. METFORMIN HCL [Concomitant]
     Dates: start: 20060316, end: 20070103
  4. METOPROLOL TARTRATE [Concomitant]
  5. TRICOR [Concomitant]
  6. LISINOPRIL [Concomitant]
  7. TOPROL-XL [Concomitant]

REACTIONS (2)
  - ACUTE CORONARY SYNDROME [None]
  - MYOCARDIAL INFARCTION [None]
